FAERS Safety Report 10695607 (Version 1)
Quarter: 2015Q1

REPORT INFORMATION
  Report Type: Spontaneous
  Country: US (occurrence: US)
  Receive Date: 20150107
  Receipt Date: 20150107
  Transmission Date: 20150721
  Serious: Yes (Other)
  Sender: FDA-Public Use
  Company Number: US-PFIZER INC-2015004692

PATIENT
  Age: 69 Year
  Sex: Female
  Weight: 54 kg

DRUGS (2)
  1. CELEBREX [Suspect]
     Active Substance: CELECOXIB
     Indication: BACK DISORDER
  2. CELEBREX [Suspect]
     Active Substance: CELECOXIB
     Indication: ARTHROPATHY
     Dosage: 200 MG, DAILY
     Route: 048
     Dates: end: 201412

REACTIONS (6)
  - Lower respiratory tract infection [Unknown]
  - Gastric haemorrhage [Unknown]
  - Phantom pain [Not Recovered/Not Resolved]
  - Insomnia [Not Recovered/Not Resolved]
  - Anaemia [Unknown]
  - Dizziness [Unknown]

NARRATIVE: CASE EVENT DATE: 201411
